FAERS Safety Report 14893543 (Version 2)
Quarter: 2018Q3

REPORT INFORMATION
  Report Type: Spontaneous
  Country: JP (occurrence: JP)
  Receive Date: 20180514
  Receipt Date: 20180704
  Transmission Date: 20181010
  Serious: Yes (Other)
  Sender: FDA-Public Use
  Company Number: JP-SHIRE-JP201813620

PATIENT

DRUGS (4)
  1. CALCIUM CARBONATE. [Concomitant]
     Active Substance: CALCIUM CARBONATE
     Indication: PRODUCT USED FOR UNKNOWN INDICATION
  2. LONGASTERIL [Concomitant]
     Indication: PRODUCT USED FOR UNKNOWN INDICATION
  3. HALCION [Concomitant]
     Active Substance: TRIAZOLAM
     Indication: PRODUCT USED FOR UNKNOWN INDICATION
  4. FOSRENOL [Suspect]
     Active Substance: LANTHANUM CARBONATE
     Indication: HYPERPHOSPHATAEMIA
     Dosage: 750 MG, 3X/DAY:TID
     Route: 048
     Dates: start: 20110518, end: 20150505

REACTIONS (5)
  - Duodenal ulcer [Recovered/Resolved]
  - Medication residue present [Unknown]
  - Gastritis [Unknown]
  - Abdominal discomfort [Unknown]
  - Gastric polyps [Unknown]

NARRATIVE: CASE EVENT DATE: 201305
